FAERS Safety Report 13123039 (Version 4)
Quarter: 2017Q2

REPORT INFORMATION
  Report Type: Report from Study
  Country: RU (occurrence: RU)
  Receive Date: 20170117
  Receipt Date: 20170406
  Transmission Date: 20170830
  Serious: Yes (Hospitalization)
  Sender: FDA-Public Use
  Company Number: RU-PFIZER INC-2016528961

PATIENT
  Age: 63 Year
  Sex: Female
  Weight: 75 kg

DRUGS (5)
  1. ANDIPAL /02404301/ [Concomitant]
     Indication: HYPERTENSION
     Dosage: 1 TABLET, AS NEEDED
     Route: 048
     Dates: start: 2000
  2. MSB0010718C [Suspect]
     Active Substance: AVELUMAB
     Indication: METASTATIC RENAL CELL CARCINOMA
     Dosage: 750 MG, EVERY 2 WEEKS
     Route: 042
     Dates: start: 20161013, end: 20161027
  3. BETALOK [Concomitant]
     Active Substance: METOPROLOL SUCCINATE
     Indication: HYPERTENSION
     Dosage: 50 MG, QD
     Route: 048
     Dates: start: 2007
  4. CAPOTEN [Concomitant]
     Active Substance: CAPTOPRIL
     Indication: HYPERTENSION
     Dosage: 25 MG, AS NEEDED
     Route: 048
     Dates: start: 2000
  5. INLYTA [Suspect]
     Active Substance: AXITINIB
     Indication: METASTATIC RENAL CELL CARCINOMA
     Dosage: 5 MG, TWICE DAILY, CONTINOUS
     Route: 048
     Dates: start: 20161013, end: 20161105

REACTIONS (3)
  - Gastrointestinal necrosis [Recovered/Resolved]
  - Intestinal perforation [Recovered/Resolved]
  - Peritonitis [Recovered/Resolved]

NARRATIVE: CASE EVENT DATE: 20161105
